FAERS Safety Report 25762040 (Version 1)
Quarter: 2025Q3

REPORT INFORMATION
  Report Type: Spontaneous
  Country: EU (occurrence: EU)
  Receive Date: 20250904
  Receipt Date: 20250904
  Transmission Date: 20251021
  Serious: Yes (Other)
  Sender: BAUSCH AND LOMB
  Company Number: EU-BAUSCH-BH-2025-016984

PATIENT
  Age: 81 Year
  Sex: Female
  Weight: 47 kg

DRUGS (7)
  1. DEXAMETHASONE [Suspect]
     Active Substance: DEXAMETHASONE
     Indication: Plasma cell myeloma
     Dosage: LINE 1
     Dates: start: 20201207, end: 20220301
  2. DEXAMETHASONE [Suspect]
     Active Substance: DEXAMETHASONE
     Dosage: LINE 1
     Dates: start: 20210107
  3. REVLIMID [Suspect]
     Active Substance: LENALIDOMIDE
     Indication: Plasma cell myeloma
     Dosage: LINE 1
     Dates: start: 20201207, end: 20210124
  4. REVLIMID [Suspect]
     Active Substance: LENALIDOMIDE
     Dosage: 0-0-1
     Dates: start: 20210208
  5. REVLIMID [Suspect]
     Active Substance: LENALIDOMIDE
     Dosage: LINE 1
     Dates: start: 20210107
  6. REVLIMID [Suspect]
     Active Substance: LENALIDOMIDE
     Route: 065
  7. HUMAN RED BLOOD CELL [Concomitant]
     Active Substance: HUMAN RED BLOOD CELL
     Indication: Product used for unknown indication
     Route: 042
     Dates: start: 20200612

REACTIONS (2)
  - Leukopenia [Not Recovered/Not Resolved]
  - Neutropenia [Not Recovered/Not Resolved]

NARRATIVE: CASE EVENT DATE: 20210118
